FAERS Safety Report 6213853-1 (Version None)
Quarter: 2009Q2

REPORT INFORMATION
  Report Type: 
  Country: None (occurrence: None)
  Receive Date: 20090601
  Receipt Date: 20090601
  Transmission Date: 20091009
  Serious: Yes (Hospitalization, Disabling)
  Sender: FDA-Public Use
  Company Number: None

PATIENT
  Age: 44 Year
  Sex: Female
  Weight: 89.3 kg

DRUGS (1)
  1. METOCLOPRAMIDE [Suspect]
     Indication: GASTROINTESTINAL DISORDER THERAPY
     Dates: start: 20090518, end: 20090521

REACTIONS (1)
  - METHAEMOGLOBINAEMIA [None]
